FAERS Safety Report 10142729 (Version 2)
Quarter: 2014Q2

REPORT INFORMATION
  Report Type: Report from Study
  Country: US (occurrence: US)
  Receive Date: 20140430
  Receipt Date: 20140430
  Transmission Date: 20141212
  Serious: Yes (Other)
  Sender: FDA-Public Use
  Company Number: US-ROCHE-1382898

PATIENT
  Sex: Male
  Weight: 76 kg

DRUGS (4)
  1. NUTROPIN [Suspect]
     Indication: GROWTH HORMONE DEFICIENCY
     Dosage: EVERY NIGHT AT BEDTIME
     Route: 058
     Dates: end: 20140412
  2. NUTROPIN [Suspect]
     Route: 058
     Dates: start: 20140212
  3. CONCERTA [Concomitant]
     Route: 065
  4. CITRACAL [Concomitant]
     Dosage: SLOW RELEASE
     Route: 065

REACTIONS (9)
  - Blood pressure increased [Unknown]
  - Migraine [Unknown]
  - Constipation [Unknown]
  - Obesity [Unknown]
  - Acanthosis nigricans [Unknown]
  - Drug dose omission [Unknown]
  - Adipomastia [Unknown]
  - Vitamin D deficiency [Unknown]
  - Blood cholesterol increased [Unknown]
